FAERS Safety Report 11092885 (Version 1)
Quarter: 2015Q2

REPORT INFORMATION
  Report Type: Spontaneous
  Country: US (occurrence: None)
  Receive Date: 20150504
  Receipt Date: 20150504
  Transmission Date: 20150821
  Serious: Yes (Other)
  Sender: FDA-Public Use
  Company Number: ABR_02182_2015

PATIENT
  Age: 32 Year
  Sex: Female

DRUGS (1)
  1. EDARBYCLOR [Suspect]
     Active Substance: AZILSARTAN KAMEDOXOMIL\CHLORTHALIDONE
     Indication: HYPERTENSION
     Dosage: 1 DF QD, 40/25 MG ORAL
     Route: 048
     Dates: start: 201504, end: 20150422

REACTIONS (7)
  - Loss of consciousness [None]
  - Abdominal pain upper [None]
  - Diarrhoea [None]
  - Weight decreased [None]
  - Dizziness [None]
  - Dysuria [None]
  - Migraine [None]

NARRATIVE: CASE EVENT DATE: 201504
